FAERS Safety Report 8309402-4 (Version None)
Quarter: 2012Q2

REPORT INFORMATION
  Report Type: 
  Country: None (occurrence: None)
  Receive Date: 20120424
  Receipt Date: 20120424
  Transmission Date: 20120825
  Serious: No
  Sender: FDA-Public Use
  Company Number: None

PATIENT

DRUGS (2)
  1. CYMBALTA [Suspect]
  2. WELLBUTRIN [Suspect]

REACTIONS (1)
  - CONVULSION [None]
